FAERS Safety Report 21815500 (Version 1)
Quarter: 2023Q1

REPORT INFORMATION
  Report Type: Report from Study
  Country: US (occurrence: US)
  Receive Date: 20230104
  Receipt Date: 20230104
  Transmission Date: 20230418
  Serious: No
  Sender: FDA-Public Use
  Company Number: US-ABBVIE-4215690

PATIENT
  Sex: Female

DRUGS (19)
  1. SKYRIZI [Suspect]
     Active Substance: RISANKIZUMAB-RZAA
     Indication: Psoriatic arthropathy
     Dosage: FORM STRENGTH: 150 MILLIGRAM/MILLILITERS
     Route: 058
     Dates: start: 202111
  2. VITAMIN E [Concomitant]
     Active Substance: .ALPHA.-TOCOPHEROL
     Indication: Product used for unknown indication
     Route: 048
  3. 10 mg Farxiga [Concomitant]
     Indication: Product used for unknown indication
     Route: 048
  4. SYNTHROID [Concomitant]
     Active Substance: LEVOTHYROXINE SODIUM
     Indication: Product used for unknown indication
     Route: 048
  5. VITAMIN D [Concomitant]
     Active Substance: VITAMIN D NOS
     Indication: Product used for unknown indication
     Route: 048
  6. 12.5 mg Carvedilol [Concomitant]
     Indication: Product used for unknown indication
     Route: 048
  7. MAGNESIUM [Concomitant]
     Active Substance: MAGNESIUM
     Indication: Product used for unknown indication
     Route: 048
  8. CALCIUM\VITAMIN D [Concomitant]
     Active Substance: CALCIUM\VITAMIN D
     Indication: Product used for unknown indication
     Route: 048
  9. DIETARY SUPPLEMENT\HERBALS\MILK THISTLE [Concomitant]
     Active Substance: DIETARY SUPPLEMENT\HERBALS\MILK THISTLE
     Indication: Product used for unknown indication
     Dosage: MILK THISTLE 175 MG TABLET
     Route: 048
  10. VITAMIN C [Concomitant]
     Active Substance: ASCORBIC ACID
     Indication: Product used for unknown indication
     Route: 048
  11. 1 mg Livalo [Concomitant]
     Indication: Product used for unknown indication
     Route: 048
  12. 1100 mg/20 mg Omeprazole 20mg/sodium bicarbonate 1100mg [Concomitant]
     Indication: Product used for unknown indication
     Route: 048
  13. Vitamin b complex/b12 [Concomitant]
     Indication: Product used for unknown indication
     Route: 065
  14. 10 mg Lexapro [Concomitant]
     Indication: Product used for unknown indication
     Route: 048
  15. MODERNA COVID-19 VACCINE [Concomitant]
     Active Substance: ELASOMERAN
     Indication: COVID-19 immunisation
     Dosage: ONE IN ONCE
     Route: 030
  16. Maxidex ophthalmic [Concomitant]
     Indication: Product used for unknown indication
     Route: 065
  17. 100 mg Losartan potassium, tablets [Concomitant]
     Indication: Product used for unknown indication
     Route: 048
  18. Procardia, xl [Concomitant]
     Indication: Product used for unknown indication
     Route: 048
  19. JANUVIA [Concomitant]
     Active Substance: SITAGLIPTIN PHOSPHATE
     Indication: Product used for unknown indication
     Route: 048

REACTIONS (1)
  - Laryngitis [Not Recovered/Not Resolved]
